FAERS Safety Report 15507016 (Version 2)
Quarter: 2018Q4

REPORT INFORMATION
  Report Type: Report from Study
  Country: GB (occurrence: GB)
  Receive Date: 20181016
  Receipt Date: 20181227
  Transmission Date: 20190205
  Serious: Yes (Other)
  Sender: FDA-Public Use
  Company Number: PHHY2018GB122057

PATIENT
  Age: 44 Year
  Sex: Female

DRUGS (1)
  1. ERELZI [Suspect]
     Active Substance: ETANERCEPT-SZZS
     Indication: PSORIATIC ARTHROPATHY
     Dosage: 50 MG, QW
     Route: 058
     Dates: start: 20181005

REACTIONS (3)
  - Respiratory tract infection [Unknown]
  - Paraesthesia oral [Recovered/Resolved]
  - Gingivitis [Unknown]

NARRATIVE: CASE EVENT DATE: 20181005
